FAERS Safety Report 16051943 (Version 1)
Quarter: 2019Q1

REPORT INFORMATION
  Report Type: Spontaneous
  Country: FR (occurrence: FR)
  Receive Date: 20190308
  Receipt Date: 20190308
  Transmission Date: 20190418
  Serious: Yes (Death, Hospitalization, Other)
  Sender: FDA-Public Use
  Company Number: FR-INCYTE CORPORATION-2019IN001971

PATIENT

DRUGS (1)
  1. JAKAVI [Suspect]
     Active Substance: RUXOLITINIB
     Indication: PRIMARY MYELOFIBROSIS
     Dosage: 15 MG, BID
     Route: 065
     Dates: start: 201403

REACTIONS (8)
  - Tuberculosis of central nervous system [Not Recovered/Not Resolved]
  - Confusional state [Unknown]
  - Lymphopenia [Unknown]
  - Thrombocytopenia [Unknown]
  - Tuberculosis [Not Recovered/Not Resolved]
  - Pyrexia [Unknown]
  - Cerebral haemorrhage [Fatal]
  - Monocytopenia [Unknown]

NARRATIVE: CASE EVENT DATE: 201412
